FAERS Safety Report 15561535 (Version 1)
Quarter: 2018Q4

REPORT INFORMATION
  Report Type: Spontaneous
  Country: US (occurrence: US)
  Receive Date: 20181029
  Receipt Date: 20181029
  Transmission Date: 20190205
  Serious: No
  Sender: FDA-Public Use
  Company Number: US-BEH-2018096104

PATIENT
  Age: 68 Year
  Sex: Male

DRUGS (1)
  1. HIZENTRA [Suspect]
     Active Substance: HUMAN IMMUNOGLOBULIN G
     Indication: SELECTIVE IGG SUBCLASS DEFICIENCY
     Dosage: 10 G (50ML), QW
     Route: 058
     Dates: start: 201712

REACTIONS (2)
  - Administration site erythema [Unknown]
  - Administration site discolouration [Unknown]

NARRATIVE: CASE EVENT DATE: 201810
